FAERS Safety Report 19705491 (Version 1)
Quarter: 2021Q3

REPORT INFORMATION
  Report Type: Report from Study
  Country: US (occurrence: US)
  Receive Date: 20210816
  Receipt Date: 20210816
  Transmission Date: 20211014
  Serious: Yes (Other)
  Sender: FDA-Public Use
  Company Number: US-MYLANLABS-2021M1051477

PATIENT
  Age: 56 Year
  Sex: Female

DRUGS (11)
  1. BACLOFEN. [Suspect]
     Active Substance: BACLOFEN
     Indication: DYSKINESIA
     Dosage: UNK
     Route: 065
  2. GABAPENTIN. [Suspect]
     Active Substance: GABAPENTIN
     Indication: DYSKINESIA
     Dosage: UNK
     Route: 065
  3. CARBIDOPA/LEVODOPA [Suspect]
     Active Substance: CARBIDOPA\LEVODOPA
     Indication: PARKINSONISM
     Dosage: CARBIDOPA/LEVODOPA 25/100 1/2 THREE TIMES A DAY
     Route: 065
  4. DONEPEZIL. [Suspect]
     Active Substance: DONEPEZIL
     Indication: DYSKINESIA
     Dosage: UNK
     Route: 065
  5. AMANTADINE. [Suspect]
     Active Substance: AMANTADINE HYDROCHLORIDE
     Indication: DYSKINESIA
     Dosage: UNK
     Route: 065
  6. LEVODOPA [Suspect]
     Active Substance: LEVODOPA
     Dosage: UNK
  7. AMANTADINE. [Suspect]
     Active Substance: AMANTADINE HYDROCHLORIDE
     Dosage: UNK
  8. PERGOLIDE [Suspect]
     Active Substance: PERGOLIDE
     Indication: PARKINSONISM
     Dosage: 3.5 MILLIGRAM
     Route: 065
  9. LEVODOPA [Suspect]
     Active Substance: LEVODOPA
     Indication: PARKINSONISM
     Dosage: UNK
     Route: 065
  10. ROPINIROLE. [Suspect]
     Active Substance: ROPINIROLE
     Indication: PARKINSONISM
     Dosage: VARIED FROM 0.625 MG DAILY TO 1.5 MG DAILY
     Route: 065
  11. RILUZOLE. [Suspect]
     Active Substance: RILUZOLE
     Indication: DYSKINESIA
     Dosage: UNK
     Route: 065

REACTIONS (2)
  - Dyskinesia [Recovered/Resolved]
  - Drug ineffective [Unknown]
